FAERS Safety Report 22150506 (Version 2)
Quarter: 2023Q2

REPORT INFORMATION
  Report Type: Spontaneous
  Country: GB (occurrence: GB)
  Receive Date: 20230329
  Receipt Date: 20230427
  Transmission Date: 20230721
  Serious: Yes (Hospitalization, Other)
  Sender: FDA-Public Use
  Company Number: GB-MHRA-MED-202303221347262200-QVRGL

PATIENT
  Age: 57 Year
  Sex: Female
  Weight: 89 kg

DRUGS (2)
  1. ATORVASTATIN [Suspect]
     Active Substance: ATORVASTATIN
     Indication: Disease risk factor
     Dosage: 20 MILLIGRAM, QD (20 MG ONCE DAILY)
     Route: 065
     Dates: start: 20221031, end: 20230303
  2. CLARITHROMYCIN [Suspect]
     Active Substance: CLARITHROMYCIN
     Indication: Lower respiratory tract infection
     Dosage: 500 MILLIGRAM, BID (500 MG TWICE A DAY)
     Route: 065
     Dates: start: 20230227, end: 20230303

REACTIONS (6)
  - Psychotic disorder [Recovered/Resolved]
  - Confusional state [Unknown]
  - Insomnia [Unknown]
  - Disorientation [Unknown]
  - Medication error [Unknown]
  - Labelled drug-drug interaction medication error [Unknown]

NARRATIVE: CASE EVENT DATE: 20230303
